FAERS Safety Report 6229134-6 (Version None)
Quarter: 2009Q2

REPORT INFORMATION
  Report Type: 
  Country: None (occurrence: None)
  Receive Date: 20090615
  Receipt Date: 20090605
  Transmission Date: 20091009
  Serious: Yes (Hospitalization)
  Sender: FDA-Public Use
  Company Number: JP-ASTRAZENECA-2009SE02520

PATIENT
  Age: 84 Year
  Sex: Female

DRUGS (7)
  1. CANDESARTAN CILEXETIL, HYDROCHLOROTHIAZIDE [Suspect]
     Indication: HYPERTENSION
     Route: 048
     Dates: start: 20090403, end: 20090509
  2. OMEPRAZOLE [Concomitant]
     Route: 065
  3. MUCOSTA [Concomitant]
     Route: 048
  4. ASPIRIN [Concomitant]
     Route: 048
     Dates: start: 20081208
  5. CIBENOL [Concomitant]
     Route: 048
     Dates: start: 20081208
  6. PLAVIX [Concomitant]
     Route: 048
     Dates: start: 20081208
  7. NORVASC [Concomitant]
     Route: 048

REACTIONS (1)
  - FALL [None]
